FAERS Safety Report 9787638 (Version 1)
Quarter: 2013Q4

REPORT INFORMATION
  Report Type: Spontaneous
  Country: GB (occurrence: None)
  Receive Date: 20131226
  Receipt Date: 20131226
  Transmission Date: 20140711
  Serious: Yes (Life-Threatening)
  Sender: FDA-Public Use
  Company Number: 2082043

PATIENT
  Age: 28 Year
  Sex: Female
  Weight: 90 kg

DRUGS (7)
  1. (DEXMEDETOMIDINE HYDROCHLORIDE) [Suspect]
     Indication: SEDATION
     Dosage: 1.1-0.8 MCG/KG/HR
     Route: 042
     Dates: start: 20120103, end: 20120107
  2. (DEXMEDETOMIDINE HYDROCHLORIDE) [Suspect]
     Indication: AGITATION
     Dosage: 1.1-0.8 MCG/KG/HR
     Route: 042
     Dates: start: 20120103, end: 20120107
  3. (PROPOFOL) [Concomitant]
  4. (NORADRENALINE /001275501/) [Concomitant]
  5. (FENTANYL) [Concomitant]
  6. ADRENALINE / 00003901/) [Concomitant]
  7. (CIPROFLOXACIN) [Concomitant]

REACTIONS (6)
  - Hypotension [None]
  - Acute lung injury [None]
  - Sepsis [None]
  - Acute respiratory distress syndrome [None]
  - Multi-organ failure [None]
  - Pneumonia aspiration [None]
